FAERS Safety Report 17090643 (Version 2)
Quarter: 2019Q4

REPORT INFORMATION
  Report Type: Report from Study
  Country: JP (occurrence: JP)
  Receive Date: 20191129
  Receipt Date: 20191216
  Transmission Date: 20200122
  Serious: Yes (Hospitalization, Other)
  Sender: FDA-Public Use
  Company Number: JP-B.I. PHARMACEUTICALS,INC./RIDGEFIELD-2018-NB-006377

PATIENT
  Age: 64 Year
  Sex: Male

DRUGS (1)
  1. OFEV [Suspect]
     Active Substance: NINTEDANIB
     Indication: IDIOPATHIC PULMONARY FIBROSIS
     Route: 048
     Dates: start: 20171023, end: 20181202

REACTIONS (4)
  - Pulmonary alveolar haemorrhage [Unknown]
  - Blood creatinine increased [Unknown]
  - Diarrhoea [Unknown]
  - Glomerulonephritis [Recovering/Resolving]

NARRATIVE: CASE EVENT DATE: 20181202
